FAERS Safety Report 21242674 (Version 1)
Quarter: 2022Q3

REPORT INFORMATION
  Report Type: Spontaneous
  Country: US (occurrence: None)
  Receive Date: 20220822
  Receipt Date: 20220822
  Transmission Date: 20221027
  Serious: Yes (Death)
  Sender: FDA-Public Use
  Company Number: None

PATIENT
  Sex: Male

DRUGS (14)
  1. GLATIRAMER [Suspect]
     Active Substance: GLATIRAMER
     Indication: Multiple sclerosis
     Dosage: FREQUENCY : DAILY;?
     Route: 058
     Dates: start: 20220208
  2. AMPYRA TAB [Concomitant]
  3. BACLOFEN TAB [Concomitant]
  4. FUROSEMIDE TAB [Concomitant]
  5. GABAPENTIN [Concomitant]
     Active Substance: GABAPENTIN
  6. HYDROCO/APAP TAB [Concomitant]
  7. LEVOTHYROXIN TAB [Concomitant]
  8. MELOXICAM TAB [Concomitant]
  9. MODAFINIL TAB [Concomitant]
  10. OMEPRAZOLE SODIUM [Concomitant]
     Active Substance: OMEPRAZOLE SODIUM
  11. SULFAMETHOX POW [Concomitant]
  12. SYNTHROID TAB [Concomitant]
  13. TYLENOL PM TAB [Concomitant]
  14. VIT B12/FA TAB [Concomitant]

REACTIONS (1)
  - Death [None]
